FAERS Safety Report 9101686 (Version 1)
Quarter: 2013Q1

REPORT INFORMATION
  Report Type: Spontaneous
  Country: US (occurrence: US)
  Receive Date: 20130218
  Receipt Date: 20130218
  Transmission Date: 20140127
  Serious: Yes (Other)
  Sender: FDA-Public Use
  Company Number: US-AMGEN-USASP2013010306

PATIENT
  Age: 54 Year
  Sex: Female

DRUGS (6)
  1. NEUPOGEN [Suspect]
     Indication: OVARIAN CANCER
     Dosage: 480 MUG, UNK
  2. NEUPOGEN [Suspect]
     Indication: CHEMOTHERAPY
  3. NEULASTA [Suspect]
     Indication: OVARIAN CANCER
     Dosage: UNK
  4. NEULASTA [Suspect]
     Indication: CHEMOTHERAPY
  5. DOXIL                              /00055703/ [Concomitant]
     Indication: OVARIAN CANCER
     Dosage: UNK
  6. CARBOPLATIN [Concomitant]
     Indication: OVARIAN CANCER
     Dosage: UNK

REACTIONS (2)
  - Neutrophil count decreased [Unknown]
  - Platelet count decreased [Unknown]
